FAERS Safety Report 8832343 (Version 1)
Quarter: 2012Q4

REPORT INFORMATION
  Report Type: 
  Country: FR (occurrence: FR)
  Receive Date: 20121009
  Receipt Date: 20121009
  Transmission Date: 20130627
  Serious: Yes (Hospitalization)
  Sender: FDA-Public Use
  Company Number: FR-BAXTER-2012BAX018437

PATIENT
  Sex: Male

DRUGS (19)
  1. ENDOXAN 2000 MG, LYOPHILISAT POUR SOLUTION INJECTABLE [Suspect]
     Indication: LYMPHOMA
     Route: 042
     Dates: start: 20120620
  2. MESNA [Suspect]
     Indication: PREVENTION
     Route: 042
     Dates: start: 20120620
  3. MABTHERA [Suspect]
     Indication: LYMPHOMA
     Route: 042
     Dates: start: 20120620
  4. DOXORUBICIN HYDROCHLORIDE [Suspect]
     Indication: LYMPHOMA
     Route: 042
     Dates: start: 20120620
  5. VINCRISTINE [Suspect]
     Indication: LYMPHOMA
     Dosage: 1 DOSAGE FORM/ 2mg/ 2mL
     Route: 042
     Dates: start: 20120620
  6. SULFAMETHOXAZOLE/TRIMETHOPRIM [Suspect]
     Indication: PROPHYLAXIS
     Dosage: 1 tab
     Route: 048
  7. ZYLORIC [Suspect]
     Indication: GOUT
     Route: 048
  8. ZYLORIC [Suspect]
     Route: 048
  9. ONDANSETRON [Suspect]
     Indication: DRUG USE FOR UNKNOWN INDICATION
     Dosage: I DOSAGE FORM/ 8 mg/ 4 mL
     Route: 042
     Dates: start: 20120620
  10. CORTANCYL [Suspect]
     Indication: DRUG USE FOR UNKNOWN INDICATION
     Dosage: UNKNOWN
     Route: 048
     Dates: start: 20120621, end: 20120624
  11. CORTANCYL [Suspect]
     Route: 048
     Dates: start: 20120622, end: 20120624
  12. POLARAMINE [Suspect]
     Indication: ALLERGY
     Route: 048
  13. POLARAMINE [Suspect]
     Route: 042
  14. LOXEN [Suspect]
     Indication: HYPERTENSION ARTERIAL
     Route: 048
  15. ZELITREX [Suspect]
     Indication: DRUG USE FOR UNKNOWN INDICATION
     Route: 048
  16. SPECIAFOLDINE [Suspect]
     Indication: VITAMIN SUPPLEMENTATION
     Route: 048
  17. GRANOCYTE 34 [Suspect]
     Indication: DRUG USE FOR UNKNOWN INDICATION
     Dosage: 33.6 million IU/ 1 mL
     Route: 058
  18. METHYLPREDNISOLONE [Suspect]
     Indication: PREVENTION
     Route: 042
     Dates: start: 20120620
  19. ARANESP [Suspect]
     Indication: ANAEMIA
     Route: 058

REACTIONS (1)
  - Neuropathy peripheral [Not Recovered/Not Resolved]
